FAERS Safety Report 4791439-3 (Version None)
Quarter: 2005Q4

REPORT INFORMATION
  Report Type: 
  Country: None (occurrence: None)
  Receive Date: 20051007
  Receipt Date: 20050926
  Transmission Date: 20060501
  Serious: Yes (Hospitalization)
  Sender: FDA-Public Use
  Company Number: GR-ROCHE-419199

PATIENT
  Age: 25 Year
  Sex: Female
  Weight: 65 kg

DRUGS (3)
  1. ROACCUTAN [Suspect]
     Indication: DRUG USE FOR UNKNOWN INDICATION
     Route: 048
     Dates: end: 20050815
  2. ROACCUTAN [Suspect]
     Route: 048
     Dates: start: 20050815
  3. ROACCUTAN [Suspect]
     Route: 048
     Dates: end: 20050912

REACTIONS (2)
  - HEADACHE [None]
  - VERTIGO [None]
